FAERS Safety Report 6793050-1 (Version None)
Quarter: 2010Q2

REPORT INFORMATION
  Report Type: 
  Country: None (occurrence: None)
  Receive Date: 20100624
  Receipt Date: 20081104
  Transmission Date: 20101027
  Serious: No
  Sender: FDA-Public Use
  Company Number: US-PFIZER INC-2008094552

PATIENT
  Sex: Female

DRUGS (5)
  1. XALATAN [Suspect]
  2. HYDROCHLOROTHIAZIDE [Concomitant]
  3. ENALAPRIL MALEATE [Concomitant]
  4. DILTIAZEM [Concomitant]
  5. POTASSIUM CHLORIDE [Concomitant]

REACTIONS (2)
  - INCORRECT DOSE ADMINISTERED [None]
  - VISUAL IMPAIRMENT [None]
